FAERS Safety Report 4980970-3 (Version None)
Quarter: 2006Q2

REPORT INFORMATION
  Report Type: 
  Country: None (occurrence: None)
  Receive Date: 20060418
  Receipt Date: 20060328
  Transmission Date: 20061013
  Serious: Yes (Death, Hospitalization)
  Sender: FDA-Public Use
  Company Number: US200602001658

PATIENT
  Age: 84 Year
  Sex: Male
  Weight: 62.6 kg

DRUGS (6)
  1. SOMATROPIN(SOMATROPIN) VIAL [Suspect]
     Indication: HYPOPITUITARISM
     Dosage: 0.68 IU, DAILY (1/D)
     Dates: start: 19990301, end: 20050828
  2. COUMADIN [Concomitant]
  3. COZAAR [Concomitant]
  4. SYNTHROID [Concomitant]
  5. PREDNISONE TAB [Concomitant]
  6. MEVACOR [Concomitant]

REACTIONS (16)
  - ADRENOCORTICAL INSUFFICIENCY ACUTE [None]
  - ASPIRATION [None]
  - ATRIAL FIBRILLATION [None]
  - BLOOD BICARBONATE DECREASED [None]
  - BLOOD PH DECREASED [None]
  - CARDIAC ARREST [None]
  - DEHYDRATION [None]
  - DYSPNOEA [None]
  - FATIGUE [None]
  - HAEMATEMESIS [None]
  - INSULIN-LIKE GROWTH FACTOR DECREASED [None]
  - LOSS OF CONSCIOUSNESS [None]
  - PCO2 INCREASED [None]
  - PLEURAL EFFUSION [None]
  - RENAL FAILURE ACUTE [None]
  - UROSEPSIS [None]
